FAERS Safety Report 5580421-4 (Version None)
Quarter: 2007Q4

REPORT INFORMATION
  Report Type: 
  Country: None (occurrence: None)
  Receive Date: 20071231
  Receipt Date: 20071231
  Transmission Date: 20080405
  Serious: Yes (Other)
  Sender: FDA-Public Use
  Company Number: None

PATIENT
  Age: 43 Year
  Sex: Male
  Weight: 102.0593 kg

DRUGS (2)
  1. NORDITROPIN [Suspect]
     Indication: ASTHENIA
     Dosage: .7 MILLIGRAMS DAILY SQ
     Route: 058
     Dates: start: 20060415, end: 20071229
  2. NORDITROPIN [Suspect]
     Indication: DEPRESSION
     Dosage: .7 MILLIGRAMS DAILY SQ
     Route: 058
     Dates: start: 20060415, end: 20071229

REACTIONS (1)
  - UNEVALUABLE EVENT [None]
